FAERS Safety Report 21882000 (Version 5)
Quarter: 2024Q2

REPORT INFORMATION
  Report Type: Report from Study
  Country: US (occurrence: US)
  Receive Date: 20230119
  Receipt Date: 20240506
  Transmission Date: 20240715
  Serious: Yes (Hospitalization, Other)
  Sender: FDA-Public Use
  Company Number: US-TAKEDA-2022TUS103279

PATIENT
  Sex: Female

DRUGS (2)
  1. HUMAN IMMUNOGLOBULIN G [Suspect]
     Active Substance: HUMAN IMMUNOGLOBULIN G
     Indication: Hypogammaglobulinaemia
     Dosage: UNK
     Route: 065
  2. HUMAN IMMUNOGLOBULIN G [Suspect]
     Active Substance: HUMAN IMMUNOGLOBULIN G
     Indication: Primary immunodeficiency syndrome

REACTIONS (10)
  - Infection [Not Recovered/Not Resolved]
  - COVID-19 [Unknown]
  - Immunoglobulins decreased [Not Recovered/Not Resolved]
  - Kidney infection [Unknown]
  - Fall [Unknown]
  - Joint injury [Unknown]
  - Blood pressure abnormal [Unknown]
  - Limb injury [Unknown]
  - Urinary tract infection [Unknown]
  - Dyspnoea [Unknown]
